FAERS Safety Report 16563885 (Version 1)
Quarter: 2019Q3

REPORT INFORMATION
  Report Type: Spontaneous
  Country: NL (occurrence: NL)
  Receive Date: 20190712
  Receipt Date: 20190712
  Transmission Date: 20191004
  Serious: Yes (Hospitalization)
  Sender: FDA-Public Use
  Company Number: NL-SUN PHARMACEUTICAL INDUSTRIES LTD-2019RR-213446

PATIENT
  Age: 59 Year
  Sex: Female
  Weight: 85.3 kg

DRUGS (12)
  1. LOSARTAN, 25 MGLOSARTAN TABLET FO  25MG [Concomitant]
     Indication: PRODUCT USED FOR UNKNOWN INDICATION
     Dosage: ORAAL, VOOR DE NACHT
     Route: 050
  2. CAPECITABINE, 1.000 MG/M2 (BEHANDELPLAN GEDOCUMENTEERD),CAPECITABIN... [Concomitant]
     Indication: PRODUCT USED FOR UNKNOWN INDICATION
     Dosage: ORAAL, 2DD
     Route: 050
  3. OXALIPLATIN. [Suspect]
     Active Substance: OXALIPLATIN
     Indication: COLON CANCER
     Dosage: 250 MG IN GLUCOSE 5% 550 ML INFUUS IEDERE 3 WEKEN
     Route: 050
     Dates: start: 20190522
  4. KALIUMCHLORIDE, 1.200 MGKALIUMCHLORIDE [Concomitant]
     Indication: PRODUCT USED FOR UNKNOWN INDICATION
     Dosage: ORAAL, 3DD
     Route: 050
  5. METOCLOPRAMIDE, 10 MGMETOCLOPRAMIDE TABLET 10MG [Concomitant]
     Indication: PRODUCT USED FOR UNKNOWN INDICATION
     Dosage: ORAAL, ZN 3DD
     Route: 050
  6. COLECALCIFEROL, 25.000 IECOLECALCIFEROL CAPSULE  25.000IE [Concomitant]
     Indication: PRODUCT USED FOR UNKNOWN INDICATION
     Dosage: ORAAL, 1X PER 4 WKN
     Route: 050
  7. PARACETAMOL, 1.000 MG,PARACETAMOL TABLET 1000MG [Concomitant]
     Indication: PRODUCT USED FOR UNKNOWN INDICATION
     Dosage: ORAAL, ZN 3DD
     Route: 050
  8. GLUCOSE 5%GLUCOSE 1-WATER [Concomitant]
     Indication: PRODUCT USED FOR UNKNOWN INDICATION
     Dosage: 550 ML INFUUS IEDERE 3 WEKEN
     Route: 065
  9. CETOMACROGOLCETOMACROGOL CREME [Concomitant]
     Indication: PRODUCT USED FOR UNKNOWN INDICATION
     Dosage: 4X PER DAG CUTAAN NA OPENEN 1 JAAR HOUDBAAR; LEES VOOR GEBRUIK DE BIJSLUITER  PREVENTIEF 4X DAAGS...
     Route: 050
  10. OMEPRAZOL, 40 MG,OMEPRAZOL TABLET MSR 40MG [Concomitant]
     Indication: PRODUCT USED FOR UNKNOWN INDICATION
     Dosage: ORAAL, 1DD (PATIENT NEEMT DIT ANDERS IN: 40 MG, ORAAL, 1X PER DAG, INDICATIES: CG)
     Route: 050
  11. DEXAMETHASON, 8 MGDEXAMETHASON [Concomitant]
     Indication: PRODUCT USED FOR UNKNOWN INDICATION
     Dosage: ORAAL, 1DD
     Route: 050
  12. TRAMADOL, 50 MGTRAMADOL CAPSULE 50MG [Concomitant]
     Indication: PRODUCT USED FOR UNKNOWN INDICATION
     Dosage: ORAAL, 3DD (PATIENT NEEMT DIT ANDERS IN: 50 MG, ORAAL, ZONODIG 3X PER DAG, PIJN, 8-15-23U, INDICA...
     Route: 050

REACTIONS (4)
  - Muscle spasms [Recovered/Resolved]
  - Dizziness [Unknown]
  - Hypoaesthesia [Unknown]
  - Muscular weakness [Recovered/Resolved]

NARRATIVE: CASE EVENT DATE: 20190522
